FAERS Safety Report 25651370 (Version 2)
Quarter: 2025Q3

REPORT INFORMATION
  Report Type: Report from Study
  Country: US (occurrence: US)
  Receive Date: 20250806
  Receipt Date: 20250911
  Transmission Date: 20251020
  Serious: Yes (Other)
  Sender: MALLINCKRODT
  Company Number: US-MALLINCKRODT-MNK202504620

PATIENT
  Sex: Male

DRUGS (1)
  1. CORTICOTROPIN [Suspect]
     Active Substance: CORTICOTROPIN
     Indication: Optic neuritis

REACTIONS (4)
  - Blindness [Unknown]
  - Optic neuritis [Unknown]
  - Disease recurrence [Unknown]
  - Therapeutic product effect incomplete [Unknown]
